FAERS Safety Report 5033009-8 (Version None)
Quarter: 2006Q2

REPORT INFORMATION
  Report Type: 
  Country: None (occurrence: None)
  Receive Date: 20060511
  Receipt Date: 20060302
  Transmission Date: 20061013
  Serious: Yes (Other)
  Sender: FDA-Public Use
  Company Number: 200612003US

PATIENT
  Age: 33 Year
  Sex: Female

DRUGS (3)
  1. INSULIN GLULISINE (APIDRA) [Suspect]
     Indication: DIABETES MELLITUS INSULIN-DEPENDENT
     Dates: start: 20060224, end: 20060224
  2. INSULIN LISPOR (HUMALOG) [Concomitant]
  3. BLOOD PRESSURE MEDICATION (NOS) [Concomitant]

REACTIONS (2)
  - ABDOMINAL PAIN [None]
  - HYPERGLYCAEMIA [None]
